FAERS Safety Report 8952270 (Version 3)
Quarter: 2013Q1

REPORT INFORMATION
  Report Type: Spontaneous
  Country: US (occurrence: US)
  Receive Date: 20121205
  Receipt Date: 20130116
  Transmission Date: 20140127
  Serious: Yes (Hospitalization, Other)
  Sender: FDA-Public Use
  Company Number: US-MERCK-1212USA000767

PATIENT
  Sex: Male
  Weight: 91.16 kg

DRUGS (12)
  1. JANUVIA [Suspect]
     Indication: DIABETES MELLITUS
     Dosage: 100 MG, QD
     Route: 048
     Dates: start: 2008, end: 20121129
  2. LANTUS [Concomitant]
  3. APRIDA [Concomitant]
  4. GLIMEPIRIDE [Concomitant]
  5. TRICOR (ADENOSINE) [Concomitant]
  6. EFFIENT [Concomitant]
  7. ENALAPRIL MALEATE [Concomitant]
  8. CARVEDILOL [Concomitant]
  9. PREVACID [Concomitant]
  10. BUMETANIDE [Concomitant]
  11. DIGOXIN [Concomitant]
  12. HUMULIN [Concomitant]

REACTIONS (10)
  - Intestinal haemorrhage [Not Recovered/Not Resolved]
  - Prostate cancer [Not Recovered/Not Resolved]
  - Rhinorrhoea [Unknown]
  - Depression [Not Recovered/Not Resolved]
  - Asthenia [Not Recovered/Not Resolved]
  - Fatigue [Not Recovered/Not Resolved]
  - Blood glucose increased [Not Recovered/Not Resolved]
  - Gastric pH increased [Not Recovered/Not Resolved]
  - Vertigo [Not Recovered/Not Resolved]
  - Memory impairment [Not Recovered/Not Resolved]
